FAERS Safety Report 23346367 (Version 2)
Quarter: 2024Q4

REPORT INFORMATION
  Report Type: Spontaneous
  Country: FR (occurrence: FR)
  Receive Date: 20231228
  Receipt Date: 20241024
  Transmission Date: 20250115
  Serious: Yes (Other)
  Sender: ORPHALAN
  Company Number: FR-ORPHALAN-FR-ORP-23-00064

PATIENT

DRUGS (1)
  1. TRIENTINE TETRAHYDROCHLORIDE [Suspect]
     Active Substance: TRIENTINE TETRAHYDROCHLORIDE
     Indication: Hepato-lenticular degeneration
     Dosage: 150 MILLIGRAM
     Route: 048

REACTIONS (2)
  - Transaminases increased [Unknown]
  - Off label use [Unknown]
